FAERS Safety Report 11983402 (Version 1)
Quarter: 2016Q1

REPORT INFORMATION
  Report Type: Spontaneous
  Country: CA (occurrence: CA)
  Receive Date: 20160201
  Receipt Date: 20160201
  Transmission Date: 20160526
  Serious: Yes (Other)
  Sender: FDA-Public Use
  Company Number: CA-TEVA-629367ACC

PATIENT
  Age: 15 Year
  Sex: Female
  Weight: 54 kg

DRUGS (1)
  1. FLUOXETINE [Suspect]
     Active Substance: FLUOXETINE HYDROCHLORIDE
     Indication: ANXIETY
     Dosage: 10 MILLIGRAM DAILY;
     Route: 048

REACTIONS (7)
  - Feeling of body temperature change [Unknown]
  - Headache [Unknown]
  - Irregular breathing [Unknown]
  - Anxiety [Unknown]
  - Serotonin syndrome [Unknown]
  - Dizziness [Unknown]
  - Tremor [Unknown]
